FAERS Safety Report 9572600 (Version 2)
Quarter: 2013Q4

REPORT INFORMATION
  Report Type: Spontaneous
  Country: US (occurrence: US)
  Receive Date: 20131001
  Receipt Date: 20131001
  Transmission Date: 20140711
  Serious: No
  Sender: FDA-Public Use
  Company Number: US-PURDUE-USA-2012-0081094

PATIENT
  Age: 24 Year
  Sex: Male
  Weight: 79.37 kg

DRUGS (2)
  1. BUTRANS [Suspect]
     Indication: ARTHRALGIA
     Dosage: 10 MCG, Q1H
     Route: 062
     Dates: start: 20111222, end: 20120106
  2. NORCO [Concomitant]
     Indication: ARTHRALGIA
     Dosage: 7.5\350 MG UNK
     Dates: start: 20111111, end: 20120106

REACTIONS (1)
  - Somnolence [Recovered/Resolved]
